FAERS Safety Report 4305615-7 (Version None)
Quarter: 2004Q1

REPORT INFORMATION
  Report Type: 
  Country: None (occurrence: None)
  Receive Date: 20040226
  Receipt Date: 20031212
  Transmission Date: 20041129
  Serious: No
  Sender: FDA-Public Use
  Company Number: US-BRISTOL-MYERS SQUIBB COMPANY-12457859

PATIENT
  Age: 67 Year
  Sex: Female
  Weight: 81 kg

DRUGS (7)
  1. ABILIFY [Suspect]
     Indication: SCHIZOAFFECTIVE DISORDER
     Dosage: INITIAL DOSE: 30 MG/DAY (FOR ABOUT 1 MONTH) INCREASED TO 20 MG/DAY ON 11-DEC-2003
     Route: 048
  2. COGENTIN [Concomitant]
  3. SYNTHROID [Concomitant]
  4. SINGULAIR [Concomitant]
  5. LIPITOR [Concomitant]
  6. DEPAKOTE [Concomitant]
  7. ADVAIR DISKUS 100/50 [Concomitant]

REACTIONS (2)
  - MEDICATION ERROR [None]
  - NERVOUSNESS [None]
